FAERS Safety Report 20779074 (Version 1)
Quarter: 2022Q2

REPORT INFORMATION
  Report Type: Spontaneous
  Country: US (occurrence: US)
  Receive Date: 20220503
  Receipt Date: 20220503
  Transmission Date: 20220720
  Serious: No
  Sender: FDA-Public Use
  Company Number: US-PFIZER INC-202200629637

PATIENT
  Age: 81 Year
  Sex: Female
  Weight: 50.8 kg

DRUGS (2)
  1. PAXLOVID [Suspect]
     Active Substance: NIRMATRELVIR\RITONAVIR
     Indication: COVID-19 treatment
     Dosage: UNK (TOOK THE FIRST DOSE OF PAXLOVID ON 30MAR2022 AND TOOK TWO DOSES OF PAXLOVID ON 31MAR2022)
     Dates: start: 20220330, end: 20220331
  2. PAXLOVID [Suspect]
     Active Substance: NIRMATRELVIR\RITONAVIR
     Dosage: UNK (3 DOSES OF PAXLOVID)

REACTIONS (12)
  - Intentional dose omission [Unknown]
  - Rash [Unknown]
  - Flushing [Unknown]
  - Drug hypersensitivity [Unknown]
  - Fatigue [Unknown]
  - Nasal congestion [Unknown]
  - Ear discomfort [Unknown]
  - Anosmia [Unknown]
  - Ageusia [Unknown]
  - Dizziness [Unknown]
  - Head discomfort [Unknown]
  - Suspected COVID-19 [Unknown]

NARRATIVE: CASE EVENT DATE: 20220330
